FAERS Safety Report 13600753 (Version 1)
Quarter: 2017Q2

REPORT INFORMATION
  Report Type: Spontaneous
  Country: US (occurrence: US)
  Receive Date: 20170531
  Receipt Date: 20170531
  Transmission Date: 20170830
  Serious: No
  Sender: FDA-Public Use
  Company Number: None

PATIENT
  Age: 67 Year
  Sex: Female

DRUGS (2)
  1. IBRANCE [Suspect]
     Active Substance: PALBOCICLIB
     Indication: METASTASES TO BONE
     Dosage: 125MG DAILY 21 DAYS ON, 7 DAYS OFF ORAL
     Route: 048
     Dates: start: 20170303
  2. IBRANCE [Suspect]
     Active Substance: PALBOCICLIB
     Indication: BREAST CANCER FEMALE
     Dosage: 125MG DAILY 21 DAYS ON, 7 DAYS OFF ORAL
     Route: 048
     Dates: start: 20170303

REACTIONS (2)
  - Onychoclasis [None]
  - Pain [None]

NARRATIVE: CASE EVENT DATE: 20170501
